FAERS Safety Report 8054523-7 (Version None)
Quarter: 2012Q1

REPORT INFORMATION
  Report Type: 
  Country: None (occurrence: None)
  Receive Date: 20120119
  Receipt Date: 20120110
  Transmission Date: 20120608
  Serious: Yes (Other)
  Sender: FDA-Public Use
  Company Number: BR-AMGEN-BRASP2012002598

PATIENT
  Age: 72 Year
  Sex: Female
  Weight: 110 kg

DRUGS (1)
  1. ENBREL [Suspect]
     Indication: RHEUMATOID ARTHRITIS
     Dosage: 50 MG, 1X/WEEK
     Route: 058
     Dates: start: 20110601

REACTIONS (3)
  - IMMUNODEFICIENCY [None]
  - DENTAL IMPLANTATION [None]
  - BACTERIAL INFECTION [None]
